FAERS Safety Report 4575094-3 (Version None)
Quarter: 2005Q1

REPORT INFORMATION
  Report Type: 
  Country: None (occurrence: None)
  Receive Date: 20050208
  Receipt Date: 20050117
  Transmission Date: 20050727
  Serious: Yes (Death, Life-Threatening, Hospitalization)
  Sender: FDA-Public Use
  Company Number: MM-GLAXOSMITHKLINE-B0369878A

PATIENT
  Age: 52 Year
  Sex: Female
  Weight: 59 kg

DRUGS (2)
  1. ALBENDAZOLE [Suspect]
     Dates: start: 20050115
  2. DIETHYLCARBAMAZINE [Suspect]
     Dates: start: 20050115

REACTIONS (8)
  - ACUTE MYOCARDIAL INFARCTION [None]
  - COLD SWEAT [None]
  - DIZZINESS [None]
  - DYSPNOEA [None]
  - HYPERHIDROSIS [None]
  - LOSS OF CONSCIOUSNESS [None]
  - RESTLESSNESS [None]
  - SHOCK [None]
